FAERS Safety Report 6861299-5 (Version None)
Quarter: 2010Q3

REPORT INFORMATION
  Report Type: 
  Country: None (occurrence: None)
  Receive Date: 20100720
  Receipt Date: 20100713
  Transmission Date: 20110219
  Serious: Yes (Other)
  Sender: FDA-Public Use
  Company Number: JP-B.I. PHARMACEUTICALS,INC./RIDGEFIELD-2008-BP-16441NB

PATIENT
  Age: 32 Year
  Sex: Male
  Weight: 57 kg

DRUGS (11)
  1. MICARDIS [Suspect]
     Indication: HYPERTENSION
     Dosage: 20 MG
     Route: 048
     Dates: start: 20070608
  2. MICARDIS [Suspect]
     Dosage: 40 MG
     Route: 048
     Dates: start: 20070624
  3. MICARDIS [Suspect]
     Dosage: 80 MG
     Route: 048
     Dates: start: 20070802
  4. PROGRAF [Suspect]
     Indication: LUPUS NEPHRITIS
     Dosage: 1.5 MG
     Route: 048
     Dates: start: 20070531
  5. PREDNISOLONE [Suspect]
     Indication: LUPUS NEPHRITIS
     Dosage: 50 MG
     Route: 048
     Dates: start: 20070531
  6. WARFARIN SODIUM [Concomitant]
     Dosage: 2 MG
     Route: 048
  7. ZANTAC [Concomitant]
     Dosage: 300 MG
     Route: 048
  8. ALFAROL [Concomitant]
     Dosage: 0.5 MCG
     Route: 048
  9. MEVALOTIN [Concomitant]
     Dosage: 10 MG
     Route: 048
     Dates: start: 20070829
  10. BONALON [Concomitant]
     Route: 048
  11. METHYCOBAL [Concomitant]
     Dosage: 1500 MCG
     Route: 048
     Dates: start: 20070616, end: 20080116

REACTIONS (6)
  - BLOOD CREATININE INCREASED [None]
  - HERPES ZOSTER [None]
  - NEOPLASM SKIN [None]
  - ORAL CANDIDIASIS [None]
  - UPPER RESPIRATORY TRACT INFLAMMATION [None]
  - WHITE BLOOD CELL COUNT INCREASED [None]
